FAERS Safety Report 19432096 (Version 3)
Quarter: 2021Q3

REPORT INFORMATION
  Report Type: Report from Study
  Country: US (occurrence: US)
  Receive Date: 20210617
  Receipt Date: 20210823
  Transmission Date: 20211014
  Serious: No
  Sender: FDA-Public Use
  Company Number: NVSC2021US136008

PATIENT
  Sex: Female

DRUGS (1)
  1. KESIMPTA [Suspect]
     Active Substance: OFATUMUMAB
     Indication: RELAPSING-REMITTING MULTIPLE SCLEROSIS
     Dosage: 20 MG, QMO
     Route: 058
     Dates: start: 20210323

REACTIONS (5)
  - Fatigue [Recovered/Resolved]
  - Hypoaesthesia [Unknown]
  - Dizziness [Recovered/Resolved]
  - Weight increased [Not Recovered/Not Resolved]
  - Nausea [Recovered/Resolved]
